FAERS Safety Report 6036087-2 (Version None)
Quarter: 2009Q1

REPORT INFORMATION
  Report Type: 
  Country: None (occurrence: None)
  Receive Date: 20090113
  Receipt Date: 20090112
  Transmission Date: 20090719
  Serious: Yes (Hospitalization)
  Sender: FDA-Public Use
  Company Number: IT-AMGEN-UK317845

PATIENT
  Sex: Male

DRUGS (7)
  1. ARANESP [Suspect]
     Indication: RENAL FAILURE CHRONIC
     Route: 058
     Dates: start: 20070418, end: 20081104
  2. AMLODIPINE [Concomitant]
  3. FUROSEMIDE [Concomitant]
  4. CALCITRIOL [Concomitant]
  5. ALLOPURINOL [Concomitant]
  6. LANSOPRAZOLE [Concomitant]
  7. INSULIN [Concomitant]

REACTIONS (1)
  - APLASIA PURE RED CELL [None]
